FAERS Safety Report 6694111-8 (Version None)
Quarter: 2010Q2

REPORT INFORMATION
  Report Type: 
  Country: None (occurrence: None)
  Receive Date: 20100421
  Receipt Date: 20100412
  Transmission Date: 20101027
  Serious: Yes (Other)
  Sender: FDA-Public Use
  Company Number: 2010SP016113

PATIENT
  Age: 85 Year
  Sex: Male

DRUGS (1)
  1. ASMANEX TWISTHALER [Suspect]
     Indication: EMPHYSEMA
     Dosage: 1DF; QAM; PO
     Route: 048

REACTIONS (2)
  - BURNING SENSATION [None]
  - LOSS OF CONSCIOUSNESS [None]
